FAERS Safety Report 11001364 (Version 2)
Quarter: 2016Q2

REPORT INFORMATION
  Report Type: Spontaneous
  Country: US (occurrence: US)
  Receive Date: 20150408
  Receipt Date: 20160412
  Transmission Date: 20160815
  Serious: No
  Sender: FDA-Public Use
  Company Number: US-SA-2015SA028798

PATIENT
  Sex: Female

DRUGS (3)
  1. ALLEGRA [Suspect]
     Active Substance: FEXOFENADINE HYDROCHLORIDE
     Indication: RASH
     Dosage: FREQUENCY WAS MENTIONED AS 1-2 DAY.
     Route: 048
     Dates: start: 201412, end: 201412
  2. ALLEGRA [Suspect]
     Active Substance: FEXOFENADINE HYDROCHLORIDE
     Indication: URTICARIA
     Dosage: FREQUENCY WAS MENTIONED AS 1-2 DAY.
     Route: 048
     Dates: start: 201412, end: 201412
  3. ALLEGRA [Suspect]
     Active Substance: FEXOFENADINE HYDROCHLORIDE
     Indication: PRURITUS
     Dosage: FREQUENCY WAS MENTIONED AS 1-2 DAY.
     Route: 048
     Dates: start: 201412, end: 201412

REACTIONS (4)
  - Drug administration error [Unknown]
  - Nasal dryness [Unknown]
  - Dry throat [Unknown]
  - Drug ineffective [Unknown]
